FAERS Safety Report 19384375 (Version 1)
Quarter: 2021Q2

REPORT INFORMATION
  Report Type: Spontaneous
  Country: PG (occurrence: PG)
  Receive Date: 20210608
  Receipt Date: 20210608
  Transmission Date: 20210717
  Serious: Yes (Other)
  Sender: FDA-Public Use
  Company Number: PG-JNJFOC-20210608055

PATIENT
  Age: 37 Year
  Sex: Male
  Weight: 49 kg

DRUGS (5)
  1. LINEZOLID. [Suspect]
     Active Substance: LINEZOLID
     Indication: TUBERCULOSIS
     Dosage: 600 (UNSPECIFIED UNITS)
     Route: 048
     Dates: start: 20210520, end: 20210602
  2. CLOFAZIMINE [Suspect]
     Active Substance: CLOFAZIMINE
     Indication: TUBERCULOSIS
     Dosage: 100 (UNSPECIFIED UNITS)
     Route: 048
     Dates: start: 20210520
  3. LEVOFLOXACIN. [Suspect]
     Active Substance: LEVOFLOXACIN
     Indication: TUBERCULOSIS
     Dosage: 750 (UNSPECIFIED UNITS)
     Route: 048
     Dates: start: 20210520
  4. SIRTURO [Suspect]
     Active Substance: BEDAQUILINE FUMARATE
     Indication: TUBERCULOSIS
     Dosage: 400 (UNSPECIFIED UNITS)
     Route: 048
     Dates: start: 20210520
  5. VITAMIN B6 [Concomitant]
     Active Substance: PYRIDOXINE HYDROCHLORIDE
     Indication: PROPHYLAXIS
     Dosage: 50 (UNITS UNSPECIFIED)
     Route: 048
     Dates: start: 20210520

REACTIONS (1)
  - Optic nerve disorder [Unknown]

NARRATIVE: CASE EVENT DATE: 20210602
